FAERS Safety Report 8890771 (Version 8)
Quarter: 2014Q2

REPORT INFORMATION
  Report Type: Spontaneous
  Country: US (occurrence: US)
  Receive Date: 20121106
  Receipt Date: 20140509
  Transmission Date: 20141212
  Serious: Yes (Hospitalization, Disabling, Other)
  Sender: FDA-Public Use
  Company Number: US-009507513-1210USA012406

PATIENT
  Sex: Female
  Weight: 57.14 kg

DRUGS (8)
  1. FOSAMAX [Suspect]
     Indication: OSTEOPOROSIS
     Dosage: 10 MG, QD
     Route: 048
     Dates: start: 199510, end: 200110
  2. FOSAMAX [Suspect]
     Dosage: 70 MG, QM
     Route: 048
     Dates: start: 200110, end: 200802
  3. FOSAMAX [Suspect]
     Dosage: 70 MG, QW
     Route: 048
     Dates: start: 200803, end: 201003
  4. FOSAMAX [Suspect]
     Dosage: UNK
     Route: 048
     Dates: start: 199509, end: 200903
  5. FOSAMAX PLUS D [Suspect]
     Dosage: UNK
     Route: 048
  6. ALENDRONATE SODIUM [Suspect]
     Indication: OSTEOPOROSIS
     Dosage: QW
     Route: 048
  7. CORTICOSTEROIDS (UNSPECIFIED) [Concomitant]
     Dosage: UNK
     Dates: start: 1993
  8. MAXALT [Concomitant]
     Indication: MIGRAINE
     Dosage: UNK
     Dates: start: 1990, end: 2008

REACTIONS (53)
  - Femur fracture [Unknown]
  - Pulmonary embolism [Unknown]
  - Intramedullary rod insertion [Unknown]
  - Fall [Unknown]
  - Oedema [Unknown]
  - Hypertension [Unknown]
  - Vena cava filter insertion [Unknown]
  - Tibia fracture [Unknown]
  - Rib fracture [Not Recovered/Not Resolved]
  - Spinal compression fracture [Not Recovered/Not Resolved]
  - Rib fracture [Unknown]
  - Mental disorder [Not Recovered/Not Resolved]
  - Pancreatitis acute [Unknown]
  - Cholecystectomy [Unknown]
  - Road traffic accident [Unknown]
  - Nephrolithiasis [Unknown]
  - Panic disorder [Unknown]
  - Coronary artery disease [Unknown]
  - Fibromyalgia [Unknown]
  - Obesity [Unknown]
  - Thyroid neoplasm [Unknown]
  - Spinal compression fracture [Unknown]
  - Complex regional pain syndrome [Unknown]
  - Chest pain [Unknown]
  - Rib fracture [Unknown]
  - Ankle fracture [Unknown]
  - Ankle fracture [Unknown]
  - Spinal fracture [Unknown]
  - Calcium deficiency [Unknown]
  - Blood cholesterol increased [Unknown]
  - Restless legs syndrome [Unknown]
  - Post-traumatic stress disorder [Unknown]
  - Prescribed underdose [Unknown]
  - Osteopenia [Unknown]
  - Anxiety [Unknown]
  - Depression [Unknown]
  - Contusion [Unknown]
  - Ventricular extrasystoles [Unknown]
  - Mitral valve prolapse [Unknown]
  - Leukocytosis [Unknown]
  - Pyrexia [Unknown]
  - Confusional state [Recovered/Resolved]
  - Opiates positive [Unknown]
  - Goitre [Unknown]
  - Carpal tunnel decompression [Unknown]
  - Elbow operation [Unknown]
  - Nasal septal operation [Unknown]
  - Anxiety disorder [Unknown]
  - Weight decreased [Unknown]
  - Intervertebral disc degeneration [Unknown]
  - Skin abrasion [Unknown]
  - Back pain [Not Recovered/Not Resolved]
  - Arthralgia [Unknown]
